FAERS Safety Report 9138584 (Version 1)
Quarter: 2013Q1

REPORT INFORMATION
  Report Type: Spontaneous
  Country: US (occurrence: None)
  Receive Date: 20130227
  Receipt Date: 20130227
  Transmission Date: 20140127
  Serious: Yes (Death)
  Sender: FDA-Public Use
  Company Number: 2011STPI000001

PATIENT
  Age: 22 Year
  Sex: Male
  Weight: 60.6 kg

DRUGS (1)
  1. ADAGEN [Suspect]
     Indication: COMBINED IMMUNODEFICIENCY
     Route: 030
     Dates: start: 20080202, end: 201109

REACTIONS (1)
  - B-cell lymphoma [None]
